FAERS Safety Report 7069843-2 (Version None)
Quarter: 2010Q4

REPORT INFORMATION
  Report Type: 
  Country: None (occurrence: None)
  Receive Date: 20101028
  Receipt Date: 20100625
  Transmission Date: 20110411
  Serious: No
  Sender: FDA-Public Use
  Company Number: US-WYE-H15921210

PATIENT
  Sex: Male
  Weight: 103.06 kg

DRUGS (6)
  1. PANTOPRAZOLE [Suspect]
     Indication: GASTROOESOPHAGEAL REFLUX DISEASE
     Dosage: UNKNOWN
  2. FOLIC ACID [Concomitant]
  3. AVANDIA [Concomitant]
  4. CYANOCOBALAMIN [Concomitant]
  5. CORGARD [Concomitant]
  6. FERROUS SULFATE [Concomitant]

REACTIONS (1)
  - DRUG SCREEN FALSE POSITIVE [None]
